FAERS Safety Report 8174106-8 (Version None)
Quarter: 2012Q1

REPORT INFORMATION
  Report Type: 
  Country: None (occurrence: None)
  Receive Date: 20120229
  Receipt Date: 20120217
  Transmission Date: 20120608
  Serious: Yes (Other)
  Sender: FDA-Public Use
  Company Number: FR-ROCHE-1023219

PATIENT
  Sex: Female
  Weight: 55 kg

DRUGS (4)
  1. EBASTINE [Concomitant]
  2. FLUTICASONE PROPIONATE/SALMETEROL [Concomitant]
  3. XOLAIR [Suspect]
     Indication: ASTHMA
     Route: 058
     Dates: end: 20111211
  4. SINGULAIR [Concomitant]

REACTIONS (4)
  - SERUM SICKNESS [None]
  - HYPERTHERMIA [None]
  - JOINT SWELLING [None]
  - PAIN [None]
